FAERS Safety Report 5934263-8 (Version None)
Quarter: 2008Q4

REPORT INFORMATION
  Report Type: 
  Country: None (occurrence: None)
  Receive Date: 20081028
  Receipt Date: 20081028
  Transmission Date: 20090506
  Serious: Yes (Death, Life-Threatening, Hospitalization, Disabling)
  Sender: FDA-Public Use
  Company Number: None

PATIENT
  Age: 15 Year
  Sex: Male
  Weight: 34 kg

DRUGS (6)
  1. CONIVAPTAN HYDROCHLORIDE - ASTELLAS [Suspect]
     Indication: ANURIA
     Dosage: 20-MG BOLUS + -4 MG X1 EVENT #1 IV 20-MG BOLUS + -1 MG X1 EVENT #2 IV
     Route: 042
     Dates: start: 20071003, end: 20071004
  2. CONIVAPTAN HYDROCHLORIDE - ASTELLAS [Suspect]
     Indication: HYPONATRAEMIA
     Dosage: 20-MG BOLUS + -4 MG X1 EVENT #1 IV 20-MG BOLUS + -1 MG X1 EVENT #2 IV
     Route: 042
     Dates: start: 20071003, end: 20071004
  3. CONIVAPTAN HYDROCHLORIDE - ASTELLAS [Suspect]
     Indication: OLIGURIA
     Dosage: 20-MG BOLUS + -4 MG X1 EVENT #1 IV 20-MG BOLUS + -1 MG X1 EVENT #2 IV
     Route: 042
     Dates: start: 20071003, end: 20071004
  4. CONIVAPTAN HYDROCHLORIDE - ASTELLAS [Suspect]
     Indication: ANURIA
     Dosage: 20-MG BOLUS + -4 MG X1 EVENT #1 IV 20-MG BOLUS + -1 MG X1 EVENT #2 IV
     Route: 042
     Dates: start: 20071126, end: 20071127
  5. CONIVAPTAN HYDROCHLORIDE - ASTELLAS [Suspect]
     Indication: HYPONATRAEMIA
     Dosage: 20-MG BOLUS + -4 MG X1 EVENT #1 IV 20-MG BOLUS + -1 MG X1 EVENT #2 IV
     Route: 042
     Dates: start: 20071126, end: 20071127
  6. CONIVAPTAN HYDROCHLORIDE - ASTELLAS [Suspect]
     Indication: OLIGURIA
     Dosage: 20-MG BOLUS + -4 MG X1 EVENT #1 IV 20-MG BOLUS + -1 MG X1 EVENT #2 IV
     Route: 042
     Dates: start: 20071126, end: 20071127

REACTIONS (18)
  - ATELECTASIS [None]
  - BLOOD SODIUM DECREASED [None]
  - BRADYCARDIA [None]
  - CARDIO-RESPIRATORY ARREST [None]
  - CENTRAL VENOUS PRESSURE INCREASED [None]
  - CYANOSIS [None]
  - FLUID OVERLOAD [None]
  - HAEMORRHAGE [None]
  - HEART RATE DECREASED [None]
  - HYPERVOLAEMIA [None]
  - HYPOTENSION [None]
  - HYPOXIA [None]
  - NO THERAPEUTIC RESPONSE [None]
  - OLIGURIA [None]
  - OXYGEN SATURATION DECREASED [None]
  - PULSE ABSENT [None]
  - RESPIRATORY DISORDER [None]
  - TREATMENT FAILURE [None]
